FAERS Safety Report 23420066 (Version 3)
Quarter: 2024Q2

REPORT INFORMATION
  Report Type: Spontaneous
  Country: CA (occurrence: CA)
  Receive Date: 20240119
  Receipt Date: 20240624
  Transmission Date: 20240716
  Serious: Yes (Life-Threatening, Other)
  Sender: FDA-Public Use
  Company Number: CA-SA-SAC20240112001581

PATIENT
  Age: 23 Year
  Sex: Female

DRUGS (2)
  1. TUBERSOL [Suspect]
     Active Substance: TUBERCULIN PURIFIED PROTEIN DERIVATIVE
     Indication: Skin test
     Dosage: 0.1 ML, TOTAL (5 TUPPD/0.1 ML)
     Route: 023
     Dates: start: 20230919, end: 20230919
  2. CITALOPRAM [Concomitant]
     Active Substance: CITALOPRAM\CITALOPRAM HYDROBROMIDE
     Dosage: UNK, TOTAL

REACTIONS (8)
  - Anaphylactic reaction [Unknown]
  - Chest discomfort [Unknown]
  - Dysphagia [Unknown]
  - Lip pruritus [Unknown]
  - Oral pruritus [Unknown]
  - Throat tightness [Unknown]
  - Tachycardia [Unknown]
  - Nausea [Unknown]

NARRATIVE: CASE EVENT DATE: 20230919
